FAERS Safety Report 6486365-8 (Version None)
Quarter: 2009Q4

REPORT INFORMATION
  Report Type: 
  Country: None (occurrence: None)
  Receive Date: 20091210
  Receipt Date: 20091130
  Transmission Date: 20100525
  Serious: Yes (Other)
  Sender: FDA-Public Use
  Company Number: US-RB-026523-09

PATIENT
  Age: 5 Year
  Sex: Male

DRUGS (1)
  1. DELSYM [Suspect]
     Dosage: GIVEN HALF A TEASPOON OF PRODUCT ON 2 OCCASIONS TWO WEEKS AGO
     Route: 048
     Dates: start: 20091116

REACTIONS (1)
  - CONVULSION [None]
